FAERS Safety Report 7682528-4 (Version None)
Quarter: 2011Q3

REPORT INFORMATION
  Report Type: 
  Country: None (occurrence: None)
  Receive Date: 20110815
  Receipt Date: 20110811
  Transmission Date: 20111222
  Serious: Yes (Life-Threatening, Other)
  Sender: FDA-Public Use
  Company Number: JP-ABBOTT-04P-087-0282723-00

PATIENT
  Sex: Male
  Weight: 12 kg

DRUGS (11)
  1. OLPRINONE [Concomitant]
     Indication: PRODUCT USED FOR UNKNOWN INDICATION
     Route: 065
  2. FUROSEMIDE [Concomitant]
     Indication: CARDIAC FAILURE CHRONIC
     Route: 048
  3. SEVOFLURANE [Suspect]
     Indication: ANAESTHESIA
     Route: 055
     Dates: start: 20021007, end: 20021007
  4. OXYGEN [Concomitant]
     Indication: PRODUCT USED FOR UNKNOWN INDICATION
  5. ALPHA AND BETA BLOCKERS [Concomitant]
     Indication: PRODUCT USED FOR UNKNOWN INDICATION
  6. NITROUS OXIDE [Concomitant]
     Indication: ANAESTHESIA
     Route: 055
     Dates: start: 20021007, end: 20021007
  7. ACE INHIBITORS [Concomitant]
     Indication: PRODUCT USED FOR UNKNOWN INDICATION
  8. CILAZAPRIL [Concomitant]
     Indication: CARDIAC FAILURE CHRONIC
     Route: 048
  9. DIGITOXIN TAB [Concomitant]
     Indication: CARDIAC FAILURE CHRONIC
     Route: 048
  10. SPIRONOLACTONE [Concomitant]
     Indication: CARDIAC FAILURE CHRONIC
     Route: 048
  11. DIURETICS [Concomitant]
     Indication: PRODUCT USED FOR UNKNOWN INDICATION

REACTIONS (5)
  - CARDIAC ARREST [None]
  - RESPIRATORY ARREST [None]
  - BRADYCARDIA [None]
  - HYPOTENSION [None]
  - LARYNGOSPASM [None]
